FAERS Safety Report 6591364-1 (Version None)
Quarter: 2010Q1

REPORT INFORMATION
  Report Type: 
  Country: None (occurrence: None)
  Receive Date: 20100219
  Receipt Date: 20100208
  Transmission Date: 20100710
  Serious: Yes (Other)
  Sender: FDA-Public Use
  Company Number: GB-WATSON-2010-01839

PATIENT
  Age: 56 Year
  Sex: Female

DRUGS (2)
  1. TESTOSTERONE ENANTHATE [Suspect]
     Indication: HORMONE REPLACEMENT THERAPY
     Dosage: 50 MG, UNK
  2. ALORA [Suspect]
     Indication: HORMONE REPLACEMENT THERAPY
     Dosage: 50 MG, UNK

REACTIONS (1)
  - ENDOMETRIAL CANCER [None]
